FAERS Safety Report 23179466 (Version 2)
Quarter: 2023Q4

REPORT INFORMATION
  Report Type: Spontaneous
  Country: US (occurrence: US)
  Receive Date: 20231113
  Receipt Date: 20231215
  Transmission Date: 20240109
  Serious: Yes (Life-Threatening, Hospitalization, Other)
  Sender: FDA-Public Use
  Company Number: US-AMGEN-USASP2023198956

PATIENT
  Age: 49 Year
  Sex: Male

DRUGS (4)
  1. AIMOVIG [Suspect]
     Active Substance: ERENUMAB-AOOE
     Indication: Migraine
     Dosage: 70 MILLIGRAM (1ML), QMO
     Route: 058
     Dates: start: 201910
  2. AIMOVIG [Suspect]
     Active Substance: ERENUMAB-AOOE
     Indication: Cerebrovascular accident
  3. GABAPENTIN [Concomitant]
     Active Substance: GABAPENTIN
     Indication: Spinal column injury
     Dosage: 900 MILLIGRAM, TID
     Route: 065
     Dates: start: 201703
  4. HYDROCHLORIC ACID [Concomitant]
     Active Substance: HYDROCHLORIC ACID
     Indication: Product used for unknown indication
     Dosage: UNK
     Route: 065

REACTIONS (6)
  - Asphyxia [Unknown]
  - Hyperpyrexia [Unknown]
  - Vision blurred [Unknown]
  - Fall [Unknown]
  - Cerebrovascular accident [Unknown]
  - Device difficult to use [Unknown]

NARRATIVE: CASE EVENT DATE: 20220601
